FAERS Safety Report 5460075-8 (Version None)
Quarter: 2007Q3

REPORT INFORMATION
  Report Type: 
  Country: None (occurrence: None)
  Receive Date: 20070919
  Receipt Date: 20070914
  Transmission Date: 20080115
  Serious: Yes (Other)
  Sender: FDA-Public Use
  Company Number: FRWYE311514SEP07

PATIENT
  Sex: Female

DRUGS (1)
  1. EFFEXOR XR [Suspect]
     Dosage: UNKNOWN
     Route: 048

REACTIONS (4)
  - ANAEMIA MEGALOBLASTIC [None]
  - ERYTHROBLASTOSIS [None]
  - HAPTOGLOBIN DECREASED [None]
  - PANCYTOPENIA [None]
